FAERS Safety Report 6479974-3 (Version None)
Quarter: 2009Q4

REPORT INFORMATION
  Report Type: 
  Country: None (occurrence: None)
  Receive Date: 20091202
  Receipt Date: 20091117
  Transmission Date: 20100525
  Serious: Yes (Other)
  Sender: FDA-Public Use
  Company Number: 439887

PATIENT
  Age: 58 Year
  Sex: Female
  Weight: 95 kg

DRUGS (12)
  1. EPIRUBICIN HCL [Suspect]
     Indication: GASTRIC CANCER
  2. CISPLATIN [Suspect]
     Indication: GASTRIC CANCER
  3. XELODA [Suspect]
     Indication: ADENOCARCINOMA
     Dosage: 2450 MG ( DAY ) ORAL
     Route: 047
     Dates: start: 20040221, end: 20070222
  4. (CLEXANE) [Concomitant]
  5. (DEXAMETHASONE) [Concomitant]
  6. (GABAPRNTIN) [Concomitant]
  7. IBUPROFEN [Concomitant]
  8. MS CONTIN [Concomitant]
  9. (OMEPRAZOLE) [Concomitant]
  10. ONDANSETRON [Concomitant]
  11. (PARACETAMOL) [Concomitant]
  12. (SEVREDOL) [Concomitant]

REACTIONS (1)
  - DRUG HYPERSENSITIVITY [None]
